FAERS Safety Report 9270171 (Version 1)
Quarter: 2013Q2

REPORT INFORMATION
  Report Type: Spontaneous
  Country: FR (occurrence: FR)
  Receive Date: 20130503
  Receipt Date: 20130503
  Transmission Date: 20140414
  Serious: Yes (Hospitalization, Disabling)
  Sender: FDA-Public Use
  Company Number: FR-VIIV HEALTHCARE LIMITED-B0300143A

PATIENT
  Age: 37 Year
  Sex: Female
  Weight: 60 kg

DRUGS (8)
  1. TRIZIVIR [Suspect]
     Indication: HIV INFECTION
     Dosage: 2TAB PER DAY
     Route: 048
     Dates: start: 20030321, end: 200305
  2. VIRAFERON [Suspect]
     Indication: CHRONIC HEPATITIS C
     Route: 058
     Dates: start: 20021015, end: 20030115
  3. INTERFERON [Suspect]
     Indication: CHRONIC HEPATITIS C
     Route: 058
     Dates: start: 1999
  4. RIBAVIRIN [Concomitant]
     Indication: HEPATITIS C
     Route: 065
     Dates: start: 20021001, end: 20030110
  5. HOMEOPATHY [Concomitant]
     Route: 065
  6. LEDERFOLINE [Concomitant]
     Route: 048
     Dates: start: 20030421
  7. PROZAC [Concomitant]
     Dosage: 1TAB PER DAY
     Route: 048
     Dates: start: 20021001, end: 20030210
  8. BACTRIM [Concomitant]
     Route: 048
     Dates: end: 20030421

REACTIONS (5)
  - Pulmonary arterial hypertension [Not Recovered/Not Resolved]
  - Dyspnoea exertional [Unknown]
  - Right ventricular dysfunction [Not Recovered/Not Resolved]
  - Dilatation ventricular [Not Recovered/Not Resolved]
  - Raynaud^s phenomenon [Unknown]
